FAERS Safety Report 24748414 (Version 1)
Quarter: 2024Q4

REPORT INFORMATION
  Report Type: Report from Study
  Country: DE (occurrence: DE)
  Receive Date: 20241218
  Receipt Date: 20241218
  Transmission Date: 20250115
  Serious: Yes (Hospitalization)
  Sender: ABBVIE
  Company Number: DE-ABBVIE-5945071

PATIENT
  Age: 63 Year
  Sex: Female

DRUGS (2)
  1. FOSCARBIDOPA\FOSLEVODOPA [Suspect]
     Active Substance: FOSCARBIDOPA\FOSLEVODOPA
     Indication: Parkinson^s disease
     Dosage: CRN: 0.30 ML/H, CR: 0.33 ML/H, CRH: 0.35 ML/H, ED: 0.15 ML?LAST ADMINISTRATION DATE SEP 2024
     Route: 058
     Dates: start: 20240924
  2. FOSCARBIDOPA\FOSLEVODOPA [Suspect]
     Active Substance: FOSCARBIDOPA\FOSLEVODOPA
     Dosage: CRN: 0.33 ML/H, CR: 0.36 ML/H, CRH: 0.38 ML/H, ED: 0.15 ML??FIRST ADMINISTRATION DATE SEP 2024
     Route: 058

REACTIONS (3)
  - Muscular weakness [Unknown]
  - On and off phenomenon [Recovered/Resolved]
  - Pain in extremity [Unknown]

NARRATIVE: CASE EVENT DATE: 20240101
